FAERS Safety Report 7802548-6 (Version None)
Quarter: 2011Q4

REPORT INFORMATION
  Report Type: 
  Country: None (occurrence: None)
  Receive Date: 20111005
  Receipt Date: 20110923
  Transmission Date: 20120403
  Serious: Yes (Hospitalization)
  Sender: FDA-Public Use
  Company Number: 2011226525

PATIENT
  Age: 76 Year
  Sex: Female

DRUGS (5)
  1. PARIET (RABEPRAZOLE SODIUM) GASTRO-RESISTANT TABLET [Suspect]
     Dosage: 10 MG, 1 X/DAY
     Dates: start: 20110824, end: 20110913
  2. TOPALGIC LP (TRAMADOL HYDROCHLORIDE) PROLONGED-RELEASE TABLET [Suspect]
     Dosage: 150 MG, 2X/DAY, ORAL
     Route: 048
     Dates: start: 20110824, end: 20110912
  3. PRIMPERAN TAB [Suspect]
     Dosage: 1 DF, 3X/DAV, ORAL
     Route: 048
     Dates: start: 20110824, end: 20110913
  4. MIANSERIN HYDROCHLORIDE (MIANSERIN HYDROCHLORIDE) [Suspect]
     Dosage: 10 MG, 1X/DAY, ORAL
     Route: 048
     Dates: start: 20110909, end: 20110912
  5. FRAGMIN [Suspect]
     Dosage: 5000 IU, 1 X/DAY, INTRAVENOUS
     Route: 042
     Dates: start: 20110824

REACTIONS (2)
  - DISTURBANCE IN ATTENTION [None]
  - CONFUSIONAL STATE [None]
